FAERS Safety Report 7891974-5 (Version None)
Quarter: 2011Q4

REPORT INFORMATION
  Report Type: 
  Country: None (occurrence: None)
  Receive Date: 20111103
  Receipt Date: 20110812
  Transmission Date: 20120403
  Serious: No
  Sender: FDA-Public Use
  Company Number: US-AMGEN-USASP2011041158

PATIENT
  Age: 55 Year
  Weight: 74.83 kg

DRUGS (9)
  1. ZETIA [Concomitant]
     Dosage: 10 MG, UNK
     Route: 048
  2. ENBREL [Suspect]
     Indication: PRODUCT USED FOR UNKNOWN INDICATION
     Dosage: 50 MG, QWK
     Route: 058
     Dates: start: 20110804
  3. CALCIUM VIT D [Concomitant]
     Dosage: UNK
     Route: 048
  4. METHOTREXATE [Concomitant]
     Dosage: 2.5 MG, UNK
     Route: 048
  5. LYRICA [Concomitant]
     Dosage: 100 MG, UNK
     Route: 048
  6. SIMVASTATIN [Concomitant]
     Dosage: 10 MG, UNK
     Route: 048
  7. LISINOPRIL [Concomitant]
     Dosage: 10 MG, UNK
     Route: 048
  8. LISINOPRIL [Concomitant]
  9. MULTI TABS [Concomitant]
     Dosage: UNK
     Route: 048

REACTIONS (1)
  - GASTROENTERITIS VIRAL [None]
